FAERS Safety Report 7640310-8 (Version None)
Quarter: 2011Q3

REPORT INFORMATION
  Report Type: 
  Country: None (occurrence: None)
  Receive Date: 20110728
  Receipt Date: 20110627
  Transmission Date: 20111222
  Serious: Yes (Other)
  Sender: FDA-Public Use
  Company Number: US-BAYER-2011-010402

PATIENT
  Age: 21 Year
  Weight: 102.4 kg

DRUGS (19)
  1. HALFLYTELY [BISACODYL,ELECTROLYTES NOS,MACROGOL 3350] [Concomitant]
  2. KLONOPIN [Concomitant]
     Dosage: UNK UNK, PRN
  3. CLONAZEPAM [Concomitant]
  4. AZITHROMYCIN [Concomitant]
  5. TAMIFLU [Concomitant]
  6. VICODIN [Concomitant]
  7. CYMBALTA [Concomitant]
     Dosage: UNK UNK, QD
  8. KLONOPIN [Concomitant]
     Dosage: 0.5 MG, QD
  9. DARVOCET [Concomitant]
     Dosage: 100 MG, PRN
  10. CHOLESTYRAMINE [Concomitant]
  11. ADDERALL XR 10 [Concomitant]
  12. CLINDAMYCIN [Concomitant]
  13. YAZ [Suspect]
     Indication: PREMENSTRUAL SYNDROME
     Dosage: UNK
     Route: 048
     Dates: start: 20080301, end: 20090901
  14. NAPROXEN [Concomitant]
  15. PROMETHAZINE [Concomitant]
  16. LEVAQUIN [Concomitant]
  17. DICYCLOMINE [Concomitant]
  18. MEPERIDINE HCL [Concomitant]
  19. FLEXERIL [Concomitant]
     Dosage: 10 MG, PRN

REACTIONS (8)
  - PANCREATITIS [None]
  - PAIN [None]
  - CHOLECYSTECTOMY [None]
  - EMOTIONAL DISTRESS [None]
  - DEPRESSION [None]
  - FEAR [None]
  - ANXIETY [None]
  - CHOLECYSTITIS ACUTE [None]
